FAERS Safety Report 9676207 (Version 1)
Quarter: 2013Q4

REPORT INFORMATION
  Report Type: Spontaneous
  Country: GB (occurrence: GB)
  Receive Date: 20131107
  Receipt Date: 20131107
  Transmission Date: 20140711
  Serious: Yes (Hospitalization)
  Sender: FDA-Public Use
  Company Number: GB-ELI_LILLY_AND_COMPANY-GB201310009221

PATIENT
  Age: 88 Year
  Sex: Female

DRUGS (2)
  1. HUMULIN 30% REGULAR, 70% NPH [Suspect]
     Indication: DIABETES MELLITUS
     Dosage: 10 U, UNK
     Route: 065
  2. HUMULIN 30% REGULAR, 70% NPH [Suspect]
     Dosage: 36 U, SINGLE
     Route: 065

REACTIONS (1)
  - Incorrect dose administered [Unknown]
